FAERS Safety Report 18541126 (Version 1)
Quarter: 2020Q4

REPORT INFORMATION
  Report Type: Spontaneous
  Country: US (occurrence: US)
  Receive Date: 20201124
  Receipt Date: 20201124
  Transmission Date: 20210114
  Serious: Yes (Other)
  Sender: FDA-Public Use
  Company Number: US-PURDUE-USA-2020-0173016

PATIENT
  Sex: Female

DRUGS (6)
  1. HYDROCODONE BITARTRATE AND ACETAMINOPHEN [Suspect]
     Active Substance: ACETAMINOPHEN\HYDROCODONE BITARTRATE
     Indication: BREAKTHROUGH PAIN
     Dosage: 1 TABLET, TID
     Route: 048
     Dates: start: 200109
  2. OXYIR [Suspect]
     Active Substance: OXYCODONE HYDROCHLORIDE
     Indication: PAIN
     Dosage: UNK
     Route: 065
  3. DILAUDID [Suspect]
     Active Substance: HYDROMORPHONE HYDROCHLORIDE
     Indication: PAIN
     Dosage: UNK, UNK
     Route: 048
  4. OXYCONTIN [Suspect]
     Active Substance: OXYCODONE HYDROCHLORIDE
     Indication: PAIN
     Dosage: 40 MG, TID
     Route: 048
     Dates: start: 200109, end: 2015
  5. FENTANYL. [Suspect]
     Active Substance: FENTANYL
     Indication: PAIN
     Dosage: UNK UNK, UNK
     Route: 062
  6. HYDROCODONE BITARTRATE AND ACETAMINOPHEN [Suspect]
     Active Substance: ACETAMINOPHEN\HYDROCODONE BITARTRATE
     Dosage: 1 TABLET, TID
     Route: 048
     Dates: start: 200109

REACTIONS (11)
  - Dry mouth [Unknown]
  - Urinary incontinence [Unknown]
  - Constipation [Unknown]
  - Tooth loss [Unknown]
  - Dental caries [Unknown]
  - Rectal prolapse [Recovered/Resolved]
  - Urinary retention [Unknown]
  - Drug abuse [Unknown]
  - Drug dependence [Unknown]
  - Abscess oral [Unknown]
  - Carpal tunnel decompression [Unknown]

NARRATIVE: CASE EVENT DATE: 200208
